FAERS Safety Report 7545773-4 (Version None)
Quarter: 2011Q2

REPORT INFORMATION
  Report Type: 
  Country: None (occurrence: None)
  Receive Date: 20110614
  Receipt Date: 20110531
  Transmission Date: 20111010
  Serious: Yes (Other)
  Sender: FDA-Public Use
  Company Number: US-ELI_LILLY_AND_COMPANY-US201102005963

PATIENT
  Age: 50 Year
  Sex: Female

DRUGS (1)
  1. FORTEO [Suspect]
     Indication: OSTEOPOROSIS
     Dosage: UNK, UNKNOWN

REACTIONS (8)
  - INJECTION SITE HAEMATOMA [None]
  - INJECTION SITE PAIN [None]
  - HEART RATE INCREASED [None]
  - LETHARGY [None]
  - INJECTION SITE PRURITUS [None]
  - CONSTIPATION [None]
  - RENAL CYST [None]
  - ASTHENIA [None]
